FAERS Safety Report 5728044-8 (Version None)
Quarter: 2008Q2

REPORT INFORMATION
  Report Type: 
  Country: None (occurrence: None)
  Receive Date: 20080430
  Receipt Date: 20080415
  Transmission Date: 20081010
  Serious: Yes (Hospitalization)
  Sender: FDA-Public Use
  Company Number: 2008S1006444

PATIENT
  Sex: Male

DRUGS (1)
  1. BYSTOLIC [Suspect]
     Dosage: 5 MG, DAILY; ORAL
     Route: 048
     Dates: start: 20080401

REACTIONS (1)
  - CEREBROVASCULAR ACCIDENT [None]
